FAERS Safety Report 9310187 (Version 1)
Quarter: 2013Q2

REPORT INFORMATION
  Report Type: Spontaneous
  Country: BR (occurrence: BR)
  Receive Date: 20130527
  Receipt Date: 20130527
  Transmission Date: 20140414
  Serious: Yes (Other)
  Sender: FDA-Public Use
  Company Number: BR-AMGEN-BRASP2013036857

PATIENT
  Age: 39 Year
  Sex: Male
  Weight: 70 kg

DRUGS (4)
  1. ENBREL [Suspect]
     Indication: PSORIATIC ARTHROPATHY
     Dosage: 50 MG, ONCE WEEKLY
     Route: 058
     Dates: start: 201210
  2. METHOTREXATE [Concomitant]
     Dosage: 12 MG, 2X/WEEK
  3. IBUPROFEN [Concomitant]
     Dosage: 7.5 MG, AS NEEDED (IF FEELING PAIN)
  4. ISONIAZID [Concomitant]
     Indication: TUBERCULOSIS
     Dosage: 3 TABLETS DAILY (AFTER MEAL)

REACTIONS (6)
  - Vision blurred [Unknown]
  - Dizziness [Unknown]
  - Pain in extremity [Unknown]
  - Neck pain [Unknown]
  - Local swelling [Unknown]
  - Joint swelling [Unknown]
